FAERS Safety Report 15396780 (Version 1)
Quarter: 2018Q3

REPORT INFORMATION
  Report Type: Spontaneous
  Country: ES (occurrence: ES)
  Receive Date: 20180918
  Receipt Date: 20180918
  Transmission Date: 20181010
  Serious: Yes (Hospitalization)
  Sender: FDA-Public Use
  Company Number: ES-SA-2018SA246655

PATIENT
  Sex: Male

DRUGS (1)
  1. LANTUS SOLOSTAR [Suspect]
     Active Substance: INSULIN GLARGINE
     Indication: DIABETES MELLITUS
     Dosage: 26 IU, QD
     Route: 058

REACTIONS (6)
  - Limb injury [Recovered/Resolved]
  - Infection [Unknown]
  - Pyrexia [Unknown]
  - Chills [Unknown]
  - Wound [Recovered/Resolved]
  - Oedema peripheral [Unknown]
